FAERS Safety Report 15116324 (Version 2)
Quarter: 2018Q3

REPORT INFORMATION
  Report Type: Spontaneous
  Country: US (occurrence: US)
  Receive Date: 20180706
  Receipt Date: 20180718
  Transmission Date: 20181010
  Serious: No
  Sender: FDA-Public Use
  Company Number: US-ALKERMES INC.-ALK-2018-003273

PATIENT
  Age: 33 Year
  Sex: Male

DRUGS (1)
  1. ARISTADA [Suspect]
     Active Substance: ARIPIPRAZOLE LAUROXIL
     Indication: SCHIZOPHRENIA
     Dosage: 1064 MG, Q8WK
     Route: 030
     Dates: start: 20180607

REACTIONS (3)
  - Disturbance in attention [Not Recovered/Not Resolved]
  - Thinking abnormal [Not Recovered/Not Resolved]
  - Arthropod bite [Not Recovered/Not Resolved]

NARRATIVE: CASE EVENT DATE: 201806
